FAERS Safety Report 22593529 (Version 1)
Quarter: 2023Q2

REPORT INFORMATION
  Report Type: Report from Study
  Country: CA (occurrence: CA)
  Receive Date: 20230613
  Receipt Date: 20230613
  Transmission Date: 20230721
  Serious: Yes (Other)
  Sender: FDA-Public Use
  Company Number: CA-TAKEDA-2018TUS025127

PATIENT
  Age: 61 Year
  Sex: Male

DRUGS (9)
  1. VEDOLIZUMAB [Suspect]
     Active Substance: VEDOLIZUMAB
     Indication: Colitis ulcerative
     Dosage: 300 MILLIGRAM
     Route: 042
     Dates: start: 20180713
  2. VEDOLIZUMAB [Suspect]
     Active Substance: VEDOLIZUMAB
     Dosage: 300 MILLIGRAM
     Route: 042
  3. VEDOLIZUMAB [Suspect]
     Active Substance: VEDOLIZUMAB
     Dosage: 300 MILLIGRAM
     Route: 042
  4. VEDOLIZUMAB [Suspect]
     Active Substance: VEDOLIZUMAB
     Dosage: 300 MILLIGRAM
     Route: 042
  5. VEDOLIZUMAB [Suspect]
     Active Substance: VEDOLIZUMAB
     Dosage: 300 MILLIGRAM
     Route: 042
  6. ATORVASTATIN [Concomitant]
     Active Substance: ATORVASTATIN
     Dosage: UNK
     Route: 048
  7. ASACOL [Concomitant]
     Active Substance: MESALAMINE
     Dosage: UNK UNK, QD
     Route: 048
  8. ROSIVER [Concomitant]
     Indication: Rosacea
     Dosage: UNK
  9. PREDNISONE [Concomitant]
     Active Substance: PREDNISONE
     Indication: Lupus-like syndrome
     Dosage: 20 MILLIGRAM, QD
     Route: 048

REACTIONS (11)
  - Haematochezia [Unknown]
  - Rectal lesion [Not Recovered/Not Resolved]
  - Memory impairment [Not Recovered/Not Resolved]
  - Distractibility [Not Recovered/Not Resolved]
  - Mouth ulceration [Recovering/Resolving]
  - Osteoporosis [Unknown]
  - Upper respiratory tract infection [Not Recovered/Not Resolved]
  - Oropharyngeal pain [Not Recovered/Not Resolved]
  - Influenza [Recovered/Resolved]
  - Cough [Unknown]
  - Bronchitis [Recovered/Resolved]

NARRATIVE: CASE EVENT DATE: 20180101
